FAERS Safety Report 4470100-9 (Version None)
Quarter: 2004Q3

REPORT INFORMATION
  Report Type: 
  Country: None (occurrence: None)
  Receive Date: 20040910
  Receipt Date: 20040706
  Transmission Date: 20050211
  Serious: No
  Sender: FDA-Public Use
  Company Number: 2004222726US

PATIENT
  Age: 41 Year
  Sex: Male
  Weight: 86.2 kg

DRUGS (5)
  1. BEXTRA [Suspect]
     Indication: EXOSTOSIS
     Dosage: SEE IMAGE
     Dates: start: 20031101, end: 20040615
  2. BEXTRA [Suspect]
     Indication: EXOSTOSIS
     Dosage: SEE IMAGE
     Dates: start: 20030701, end: 20041101
  3. IBUPROFEN [Suspect]
     Indication: EXOSTOSIS
     Dates: start: 20040614
  4. STEROID INJECTIONS [Concomitant]
  5. LIPITOR [Concomitant]

REACTIONS (2)
  - DRUG INEFFECTIVE [None]
  - SKIN DISORDER [None]
